FAERS Safety Report 6898096-0 (Version None)
Quarter: 2010Q3

REPORT INFORMATION
  Report Type: 
  Country: None (occurrence: None)
  Receive Date: 20100802
  Receipt Date: 20070910
  Transmission Date: 20110219
  Serious: No
  Sender: FDA-Public Use
  Company Number: US-PFIZER INC-2007072910

PATIENT
  Sex: Female
  Weight: 56.4 kg

DRUGS (13)
  1. LYRICA [Suspect]
     Indication: FIBROMYALGIA
     Dates: start: 20070827
  2. LYRICA [Suspect]
     Indication: ARTHRITIS
  3. ULTRAM [Concomitant]
  4. TYLENOL (CAPLET) [Concomitant]
  5. PROVIGIL [Concomitant]
  6. TRAZODONE [Concomitant]
  7. SYNTHROID [Concomitant]
  8. FOSAMAX [Concomitant]
  9. VITAMIN D [Concomitant]
  10. ASCORBIC ACID [Concomitant]
  11. COENZYME Q10 [Concomitant]
  12. MULTI-VITAMINS [Concomitant]
  13. CHONDROITIN/GLUCOSAMINE [Concomitant]

REACTIONS (4)
  - COORDINATION ABNORMAL [None]
  - DIZZINESS [None]
  - MALAISE [None]
  - PAIN [None]
